FAERS Safety Report 21928065 (Version 1)
Quarter: 2023Q1

REPORT INFORMATION
  Report Type: Spontaneous
  Country: JP (occurrence: JP)
  Receive Date: 20230130
  Receipt Date: 20230130
  Transmission Date: 20230418
  Serious: Yes (Hospitalization, Other)
  Sender: FDA-Public Use
  Company Number: JP-ORGANON-O2301JPN002567

PATIENT
  Age: 57 Year
  Sex: Male

DRUGS (14)
  1. CARBIDOPA\LEVODOPA [Suspect]
     Active Substance: CARBIDOPA\LEVODOPA
     Indication: Parkinson^s disease
     Dosage: 500 MILLIGRAM/DAY
     Route: 048
     Dates: end: 201910
  2. CARBIDOPA\LEVODOPA [Suspect]
     Active Substance: CARBIDOPA\LEVODOPA
     Dosage: 700 MILLIGRAM/DAY
     Route: 048
     Dates: start: 201910, end: 2021
  3. CARBIDOPA\LEVODOPA [Suspect]
     Active Substance: CARBIDOPA\LEVODOPA
     Dosage: 900 MILLIGRAM/DAY
     Route: 048
     Dates: start: 2021, end: 2021
  4. CARBIDOPA\LEVODOPA [Suspect]
     Active Substance: CARBIDOPA\LEVODOPA
     Dosage: 1200 MILLIGRAM/DAY
     Route: 048
     Dates: start: 2021, end: 2021
  5. CARBIDOPA\LEVODOPA [Suspect]
     Active Substance: CARBIDOPA\LEVODOPA
     Dosage: 900 MILLIGRAM/DAY
     Route: 048
     Dates: start: 2021, end: 2021
  6. CARBIDOPA\LEVODOPA [Suspect]
     Active Substance: CARBIDOPA\LEVODOPA
     Dosage: 700 MILLIGRAM, QD
     Route: 048
     Dates: start: 2021, end: 2021
  7. CARBIDOPA\LEVODOPA [Suspect]
     Active Substance: CARBIDOPA\LEVODOPA
     Dosage: 600 MILLIGRAM, QD
     Route: 048
     Dates: start: 2021, end: 2021
  8. CARBIDOPA\LEVODOPA [Suspect]
     Active Substance: CARBIDOPA\LEVODOPA
     Dosage: 500 MILLIGRAM, QD
     Route: 048
     Dates: start: 2021
  9. ZONISAMIDE [Suspect]
     Active Substance: ZONISAMIDE
     Indication: Parkinson^s disease
     Dosage: 25 MILLIGRAM/DAY
     Dates: end: 2021
  10. ZONISAMIDE [Suspect]
     Active Substance: ZONISAMIDE
     Dosage: 50 MILLIGRAM/DAY
     Dates: start: 2021
  11. ROTIGOTINE [Suspect]
     Active Substance: ROTIGOTINE
     Indication: Parkinson^s disease
     Dosage: 27 MILLIGRAM
     Dates: end: 2021
  12. ROTIGOTINE [Suspect]
     Active Substance: ROTIGOTINE
     Dosage: 22.5 MILLIGRAM
     Dates: start: 2021, end: 2021
  13. OPICAPONE [Suspect]
     Active Substance: OPICAPONE
     Indication: Parkinson^s disease
     Dosage: 25 MILLIGRAM
     Dates: end: 2021
  14. SELEGILINE [Suspect]
     Active Substance: SELEGILINE
     Indication: Parkinson^s disease
     Dosage: 2.5 MILLIGRAM
     Dates: end: 2020

REACTIONS (2)
  - Parkinson^s disease psychosis [Recovered/Resolved]
  - Cotard^s syndrome [Recovered/Resolved]

NARRATIVE: CASE EVENT DATE: 20191001
